FAERS Safety Report 25385560 (Version 1)
Quarter: 2025Q2

REPORT INFORMATION
  Report Type: Spontaneous
  Country: GB (occurrence: GB)
  Receive Date: 20250602
  Receipt Date: 20250602
  Transmission Date: 20250717
  Serious: Yes (Other)
  Sender: PFIZER
  Company Number: GB-MHRA-TPP9052886C1750137YC1737374464621

PATIENT
  Age: 52 Year
  Sex: Female
  Weight: 95 kg

DRUGS (5)
  1. SULFASALAZINE [Suspect]
     Active Substance: SULFASALAZINE
     Route: 048
  2. SUMATRIPTAN [Concomitant]
     Active Substance: SUMATRIPTAN
     Dates: start: 20240911
  3. BECLOMETHASONE\FORMOTEROL [Concomitant]
     Active Substance: BECLOMETHASONE\FORMOTEROL
     Dosage: UNK, 2X/DAY (INHALE ONE-TWO PUFFS TWICE DAILY)
     Dates: start: 20241009
  4. ALBUTEROL [Concomitant]
     Active Substance: ALBUTEROL
     Dates: start: 20241009
  5. SERTRALINE [Concomitant]
     Active Substance: SERTRALINE HYDROCHLORIDE
     Dosage: 1 DF, 1X/DAY (TAKE ONE TABLET DAILY)
     Dates: start: 20241009

REACTIONS (3)
  - Wheezing [Recovering/Resolving]
  - Headache [Recovering/Resolving]
  - Fatigue [Recovering/Resolving]
